FAERS Safety Report 11222464 (Version 1)
Quarter: 2015Q2

REPORT INFORMATION
  Report Type: Spontaneous
  Country: FR (occurrence: FR)
  Receive Date: 20150626
  Receipt Date: 20150626
  Transmission Date: 20150821
  Serious: Yes (Hospitalization)
  Sender: FDA-Public Use
  Company Number: FR-GE HEALTHCARE MEDICAL DIAGNOSTICS-OMPQ-PR-1506S-0939

PATIENT
  Age: 83 Year
  Sex: Female

DRUGS (14)
  1. OMNIPAQUE [Suspect]
     Active Substance: IOHEXOL
     Indication: DIAGNOSTIC PROCEDURE
  2. HEMIGOXINE [Concomitant]
     Active Substance: DIGOXIN
  3. COUMADIN [Concomitant]
     Active Substance: WARFARIN SODIUM
     Dates: start: 20150403, end: 20150407
  4. OMNIPAQUE [Suspect]
     Active Substance: IOHEXOL
     Indication: HAEMODYNAMIC INSTABILITY
     Dosage: DOSE NOT REPORTED
     Route: 042
     Dates: start: 20150411, end: 20150411
  5. LASILIX [Concomitant]
     Active Substance: FUROSEMIDE
  6. IMOVANE [Concomitant]
     Active Substance: ZOPICLONE
  7. INEXIUM [Concomitant]
     Active Substance: ESOMEPRAZOLE
     Dates: start: 20150330
  8. TAHOR [Concomitant]
     Active Substance: ATORVASTATIN CALCIUM
     Dates: start: 20150401
  9. OMNIPAQUE [Suspect]
     Active Substance: IOHEXOL
     Indication: THERAPEUTIC PROCEDURE
  10. OMNIPAQUE [Suspect]
     Active Substance: IOHEXOL
     Indication: PELVIC HAEMATOMA
     Dosage: DOSE NOT REPORTED
     Route: 042
     Dates: start: 20150410, end: 20150410
  11. CALCIPARINE [Concomitant]
     Active Substance: HEPARIN CALCIUM
     Dates: start: 20150403
  12. OMNIPAQUE [Suspect]
     Active Substance: IOHEXOL
     Indication: HAEMATURIA
  13. BISOPROLOL [Concomitant]
     Active Substance: BISOPROLOL
  14. LOVENOX [Concomitant]
     Active Substance: ENOXAPARIN SODIUM

REACTIONS (1)
  - Renal tubular necrosis [Recovered/Resolved]

NARRATIVE: CASE EVENT DATE: 20150411
